FAERS Safety Report 7978714-6 (Version None)
Quarter: 2011Q4

REPORT INFORMATION
  Report Type: 
  Country: None (occurrence: None)
  Receive Date: 20111214
  Receipt Date: 20111208
  Transmission Date: 20120403
  Serious: Yes (Life-Threatening, Other)
  Sender: FDA-Public Use
  Company Number: JP-ASTELLAS-2011JP007577

PATIENT
  Sex: Female
  Weight: 37 kg

DRUGS (13)
  1. PROGRAF [Suspect]
     Indication: PROPHYLAXIS AGAINST GRAFT VERSUS HOST DISEASE
     Dosage: 0.4 MG, UNKNOWN/D
     Route: 041
     Dates: start: 20100927
  2. PROGRAF [Suspect]
     Indication: MYELODYSPLASTIC SYNDROME
  3. SOLU-MEDROL [Suspect]
     Indication: GRAFT VERSUS HOST DISEASE
     Dosage: 10 MG, BID
     Route: 041
     Dates: start: 20100318, end: 20110427
  4. FLUDARABINE PHOSPHATE [Concomitant]
     Route: 065
  5. METHYLPREDNISOLONE [Suspect]
     Indication: GRAFT VERSUS HOST DISEASE
     Route: 065
  6. MYCOPHENOLATE MOFETIL [Suspect]
     Indication: PROPHYLAXIS AGAINST GRAFT VERSUS HOST DISEASE
     Route: 065
  7. METHYLPREDNISOLONE [Suspect]
     Indication: ACUTE GRAFT VERSUS HOST DISEASE
     Route: 065
  8. URSO 250 [Concomitant]
     Indication: CORD BLOOD TRANSPLANT THERAPY
     Dosage: 200 MG, TID
     Route: 048
     Dates: start: 20100920, end: 20110427
  9. LEVOFLOXACIN [Concomitant]
     Indication: CORD BLOOD TRANSPLANT THERAPY
     Dosage: 500 MG, UID/QD
     Route: 048
     Dates: start: 20110301, end: 20110427
  10. VALTREX [Concomitant]
     Indication: ORAL HERPES
     Dosage: 500 MG, BID
     Route: 048
     Dates: start: 20110401, end: 20110427
  11. MELPHALAN HYDROCHLORIDE [Concomitant]
     Route: 065
  12. OMEPRAZOLE [Concomitant]
     Indication: GRAFT VERSUS HOST DISEASE
     Dosage: 10 MG, UID/QD
     Route: 048
     Dates: start: 20110301, end: 20110427
  13. FLUCONAZOLE [Concomitant]
     Indication: CORD BLOOD TRANSPLANT THERAPY
     Dosage: 200 MG, UID/QD
     Route: 048
     Dates: start: 20100920, end: 20110427

REACTIONS (5)
  - ACUTE GRAFT VERSUS HOST DISEASE [None]
  - GRAFT VERSUS HOST DISEASE [None]
  - CEREBRAL TOXOPLASMOSIS [None]
  - DRUG INEFFECTIVE [None]
  - ORAL HERPES [None]
